FAERS Safety Report 7565170-5 (Version None)
Quarter: 2011Q2

REPORT INFORMATION
  Report Type: 
  Country: None (occurrence: None)
  Receive Date: 20110622
  Receipt Date: 20110418
  Transmission Date: 20111010
  Serious: Yes (Other)
  Sender: FDA-Public Use
  Company Number: US-MYLANLABS-2011S1006237

PATIENT
  Age: 43 Year
  Sex: Male

DRUGS (8)
  1. CLOZAPINE [Suspect]
  2. CLOZAPINE [Suspect]
  3. ZYPREXA [Concomitant]
  4. PANTOPRAZOLE [Concomitant]
  5. TAMSULOSIN HCL [Concomitant]
  6. CLONAZEPAM [Concomitant]
  7. DOCUSATE SODIUM [Concomitant]
  8. ZOLPIDEM [Concomitant]

REACTIONS (2)
  - LEUKOPENIA [None]
  - GRANULOCYTOPENIA [None]
